FAERS Safety Report 19911931 (Version 2)
Quarter: 2021Q4

REPORT INFORMATION
  Report Type: Spontaneous
  Country: CN (occurrence: CN)
  Receive Date: 20211004
  Receipt Date: 20211109
  Transmission Date: 20220303
  Serious: Yes (Death, Hospitalization)
  Sender: FDA-Public Use
  Company Number: CN-BLUEPRINT MEDICINES CORPORATION-SO-CN-2021-001737

PATIENT
  Age: 68 Year
  Sex: Male

DRUGS (2)
  1. GAVRETO [Suspect]
     Active Substance: PRALSETINIB
     Indication: Lung neoplasm malignant
     Route: 048
     Dates: start: 20210823, end: 20210901
  2. GAVRETO [Suspect]
     Active Substance: PRALSETINIB
     Route: 048
     Dates: start: 202109, end: 20210928

REACTIONS (4)
  - Disease progression [Fatal]
  - Haemorrhage subcutaneous [Recovering/Resolving]
  - Erythema [Recovering/Resolving]
  - Swelling [Recovering/Resolving]

NARRATIVE: CASE EVENT DATE: 20210830
